FAERS Safety Report 20497197 (Version 2)
Quarter: 2022Q1

REPORT INFORMATION
  Report Type: Spontaneous
  Country: CN (occurrence: None)
  Receive Date: 20220221
  Receipt Date: 20220317
  Transmission Date: 20220423
  Serious: Yes (Other)
  Sender: FDA-Public Use
  Company Number: 2022A075963

PATIENT
  Age: 21909 Day
  Sex: Male
  Weight: 68 kg

DRUGS (6)
  1. DURVALUMAB [Suspect]
     Active Substance: DURVALUMAB
     Indication: Carcinoid tumour pulmonary
     Dosage: DOSE: 1500 MG, ONCE EVERY DAY
     Route: 041
     Dates: start: 20211126, end: 20211126
  2. ETOPOSIDE [Suspect]
     Active Substance: ETOPOSIDE
     Indication: Carcinoid tumour pulmonary
     Route: 041
     Dates: start: 20211126, end: 20211129
  3. CISPLATIN [Suspect]
     Active Substance: CISPLATIN
     Indication: Carcinoid tumour pulmonary
     Route: 041
     Dates: start: 20211126, end: 20211126
  4. SODIUM CHLORIDE [Concomitant]
     Active Substance: SODIUM CHLORIDE
     Indication: Menstrual disorder
     Route: 041
     Dates: start: 20211126, end: 20211126
  5. SODIUM CHLORIDE [Concomitant]
     Active Substance: SODIUM CHLORIDE
     Indication: Menstrual disorder
     Route: 041
     Dates: start: 20211126, end: 20211126
  6. SODIUM CHLORIDE [Concomitant]
     Active Substance: SODIUM CHLORIDE
     Indication: Menstrual disorder
     Route: 041
     Dates: start: 20211126, end: 20211129

REACTIONS (1)
  - Full blood count abnormal [Recovering/Resolving]

NARRATIVE: CASE EVENT DATE: 20211208
